FAERS Safety Report 24911241 (Version 1)
Quarter: 2025Q1

REPORT INFORMATION
  Report Type: Spontaneous
  Country: US (occurrence: None)
  Receive Date: 20250131
  Receipt Date: 20250131
  Transmission Date: 20250408
  Serious: Yes (Death, Life-Threatening, Hospitalization, Disabling)
  Sender: FDA-CTU
  Company Number: None

PATIENT
  Age: 73 Year
  Sex: Female
  Weight: 83.25 kg

DRUGS (17)
  1. KEYTRUDA [Suspect]
     Active Substance: PEMBROLIZUMAB
     Indication: Colon cancer
     Dates: start: 20240906, end: 20241007
  2. carbidopa-levodopa, [Concomitant]
  3. CARVEDILOL [Concomitant]
     Active Substance: CARVEDILOL
  4. constulose/lactulose [Concomitant]
  5. DONEPEZIL [Concomitant]
     Active Substance: DONEPEZIL
  6. LASIX [Concomitant]
     Active Substance: FUROSEMIDE
  7. LEVOTHYROXINE SODIUM [Concomitant]
     Active Substance: LEVOTHYROXINE SODIUM
  8. LYUMJEV [Concomitant]
     Active Substance: INSULIN LISPRO-AABC
  9. kwikpen [Concomitant]
  10. patoprazole sodium, [Concomitant]
  11. SERTRALINE [Concomitant]
     Active Substance: SERTRALINE HYDROCHLORIDE
  12. SIMVASTATIN [Concomitant]
     Active Substance: SIMVASTATIN
  13. SPIRONOLACTONE [Concomitant]
     Active Substance: SPIRONOLACTONE
  14. TRULICITY [Concomitant]
     Active Substance: DULAGLUTIDE
  15. VENLAFAXINE [Concomitant]
     Active Substance: VENLAFAXINE HYDROCHLORIDE
  16. XIFAXAN [Concomitant]
     Active Substance: RIFAXIMIN
  17. IRON [Concomitant]
     Active Substance: IRON

REACTIONS (9)
  - Abdominal discomfort [None]
  - Rectal haemorrhage [None]
  - Colitis [None]
  - Hepatic failure [None]
  - Multiple organ dysfunction syndrome [None]
  - Coagulopathy [None]
  - Blood glucose abnormal [None]
  - Anger [None]
  - Illness [None]

NARRATIVE: CASE EVENT DATE: 20240906
